FAERS Safety Report 7957924-8 (Version None)
Quarter: 2011Q4

REPORT INFORMATION
  Report Type: 
  Country: None (occurrence: None)
  Receive Date: 20111205
  Receipt Date: 20111128
  Transmission Date: 20120403
  Serious: Yes (Other)
  Sender: FDA-Public Use
  Company Number: US-ABBOTT-11P-163-0879484-00

PATIENT
  Age: 43 Year
  Sex: Female

DRUGS (6)
  1. AMBIEN [Concomitant]
     Indication: PRODUCT USED FOR UNKNOWN INDICATION
  2. SYNTHROID [Concomitant]
     Indication: PRODUCT USED FOR UNKNOWN INDICATION
  3. HUMIRA [Suspect]
     Indication: RHEUMATOID ARTHRITIS
     Route: 058
     Dates: start: 20040101
  4. CYTOMEL [Concomitant]
     Indication: THYROID DISORDER
  5. DELESTROGEN [Concomitant]
     Indication: PRODUCT USED FOR UNKNOWN INDICATION
  6. OXYCODONE HCL [Concomitant]
     Indication: ARTHRALGIA

REACTIONS (6)
  - BLISTER [None]
  - SHOULDER OPERATION [None]
  - HERPES ZOSTER [None]
  - DUPUYTREN'S CONTRACTURE [None]
  - CHOLECYSTECTOMY [None]
  - RASH [None]
